FAERS Safety Report 25656830 (Version 1)
Quarter: 2025Q3

REPORT INFORMATION
  Report Type: Spontaneous
  Country: EU (occurrence: EU)
  Receive Date: 20250807
  Receipt Date: 20250807
  Transmission Date: 20251021
  Serious: Yes (Hospitalization)
  Sender: PRINSTON PHARMACEUTICAL
  Company Number: EU-PRINSTON PHARMACEUTICAL INC.-2025PRN00250

PATIENT
  Age: 71 Year
  Sex: Male
  Weight: 74 kg

DRUGS (5)
  1. VORICONAZOLE [Suspect]
     Active Substance: VORICONAZOLE
     Indication: Bronchopulmonary aspergillosis
     Dosage: 6 MG/KG, TWICE DAILY (444 MG FOR THE FIRST TWO DOSES)
     Route: 042
  2. VORICONAZOLE [Suspect]
     Active Substance: VORICONAZOLE
     Dosage: 4 MG/KG, TWICE DAILY (296 MG)
     Route: 042
  3. VORICONAZOLE [Suspect]
     Active Substance: VORICONAZOLE
     Dosage: 200 MG, TWICE DAILY
     Route: 042
  4. NIRMATRELVIR [Suspect]
     Active Substance: NIRMATRELVIR
     Indication: Pneumonia
  5. RITONAVIR [Suspect]
     Active Substance: RITONAVIR
     Indication: COVID-19

REACTIONS (2)
  - Drug interaction [Recovered/Resolved]
  - Toxicity to various agents [Recovered/Resolved]
